FAERS Safety Report 19658611 (Version 1)
Quarter: 2021Q3

REPORT INFORMATION
  Report Type: Report from Study
  Country: CA (occurrence: CA)
  Receive Date: 20210805
  Receipt Date: 20210805
  Transmission Date: 20211014
  Serious: No
  Sender: FDA-Public Use
  Company Number: CA-JNJFOC-20210742386

PATIENT
  Age: 41 Year
  Sex: Female

DRUGS (1)
  1. SIMPONI [Suspect]
     Active Substance: GOLIMUMAB
     Indication: ANKYLOSING SPONDYLITIS
     Route: 058
     Dates: start: 20151118

REACTIONS (4)
  - Off label use [Unknown]
  - Product use issue [Unknown]
  - Device leakage [Unknown]
  - Underdose [Unknown]

NARRATIVE: CASE EVENT DATE: 20210711
